FAERS Safety Report 23690704 (Version 1)
Quarter: 2024Q2

REPORT INFORMATION
  Report Type: Spontaneous
  Country: CA (occurrence: CA)
  Receive Date: 20240401
  Receipt Date: 20240401
  Transmission Date: 20240716
  Serious: Yes (Other)
  Sender: FDA-Public Use
  Company Number: CA-AUROBINDO-AUR-APL-2024-013830

PATIENT
  Age: 6 Month
  Sex: Female

DRUGS (7)
  1. HYDROCORTISONE [Suspect]
     Active Substance: HYDROCORTISONE
     Indication: Atypical teratoid/rhabdoid tumour of CNS
     Dosage: 30 MG/M2
     Route: 065
  2. METHOTREXATE [Suspect]
     Active Substance: METHOTREXATE
     Indication: Atypical teratoid/rhabdoid tumour of CNS
     Dosage: 15 MG/M2
     Route: 065
  3. CYTARABINE [Suspect]
     Active Substance: CYTARABINE
     Indication: Atypical teratoid/rhabdoid tumour of CNS
     Dosage: 60 MG/M2
     Route: 065
  4. DACTINOMYCIN [Suspect]
     Active Substance: DACTINOMYCIN
     Indication: Atypical teratoid/rhabdoid tumour of CNS
     Dosage: UNK
     Route: 065
  5. DOXORUBICIN [Suspect]
     Active Substance: DOXORUBICIN
     Indication: Atypical teratoid/rhabdoid tumour of CNS
     Dosage: UNK
     Route: 065
  6. ETOPOSIDE [Suspect]
     Active Substance: ETOPOSIDE
     Indication: Atypical teratoid/rhabdoid tumour of CNS
     Dosage: UNK
     Route: 065
  7. ALISERTIB [Concomitant]
     Active Substance: ALISERTIB
     Indication: Atypical teratoid/rhabdoid tumour of CNS
     Dosage: 60 MG/M2, ONCE A DAY FOR 7 DAYS OF A 21 DAY TREATMENT CYCLE
     Route: 048

REACTIONS (1)
  - Drug ineffective [Unknown]
